FAERS Safety Report 24168859 (Version 1)
Quarter: 2024Q3

REPORT INFORMATION
  Report Type: Spontaneous
  Country: US (occurrence: None)
  Receive Date: 20240802
  Receipt Date: 20240802
  Transmission Date: 20241016
  Serious: No
  Sender: Public
  Company Number: None

PATIENT

DRUGS (2)
  1. CHLORPROMAZINE HYDROCHLORIDE [Suspect]
     Active Substance: CHLORPROMAZINE HYDROCHLORIDE
  2. CHLORTHALIDONE [Suspect]
     Active Substance: CHLORTHALIDONE

REACTIONS (2)
  - Intercepted product dispensing error [None]
  - Transcription medication error [None]
